FAERS Safety Report 9864125 (Version 4)
Quarter: 2014Q1

REPORT INFORMATION
  Report Type: Spontaneous
  Country: DE (occurrence: DE)
  Receive Date: 20140203
  Receipt Date: 20140211
  Transmission Date: 20141002
  Serious: Yes (Other)
  Sender: FDA-Public Use
  Company Number: DE-PFIZER INC-2014015489

PATIENT
  Age: 72 Year
  Sex: Male

DRUGS (2)
  1. LYRICA [Suspect]
     Indication: NEURALGIA
     Dosage: 75 MG, 1X/DAY IN THE EVENING
     Dates: start: 20140108, end: 20140127
  2. LYRICA [Suspect]
     Indication: DIZZINESS

REACTIONS (12)
  - Off label use [Unknown]
  - Convulsion [Unknown]
  - Weight increased [Unknown]
  - Diplopia [Unknown]
  - Pollakiuria [Unknown]
  - Balance disorder [Unknown]
  - Feeling drunk [Unknown]
  - Gait disturbance [Unknown]
  - Fall [Unknown]
  - Heart rate increased [Unknown]
  - Drug ineffective [Unknown]
  - Dizziness [Not Recovered/Not Resolved]
